FAERS Safety Report 4801730-X (Version None)
Quarter: 2005Q4

REPORT INFORMATION
  Report Type: 
  Country: None (occurrence: None)
  Receive Date: 20051012
  Receipt Date: 20051003
  Transmission Date: 20060501
  Serious: Yes (Life-Threatening)
  Sender: FDA-Public Use
  Company Number: 2005137911

PATIENT
  Age: 37 Year
  Sex: Female

DRUGS (7)
  1. HEMABATE [Suspect]
     Indication: POSTPARTUM HAEMORRHAGE
     Dosage: 500 MCG (250 MCG) INTRAMUSCULAR
     Route: 030
     Dates: start: 20050828
  2. BECLOMETHASONE (BECLOMETHASONE) [Concomitant]
  3. SALBUTAMOL (SALBUTAMOL) [Concomitant]
  4. MORPHINE [Concomitant]
  5. PHENYLEPHRINE (PHENYLEPHRINE) [Concomitant]
  6. ERGOMETRINE (ERGOMETRINE) [Concomitant]
  7. OXYTOCIN [Concomitant]

REACTIONS (2)
  - BRONCHOSPASM [None]
  - THERAPY NON-RESPONDER [None]
